FAERS Safety Report 8779374 (Version 1)
Quarter: 2012Q4

REPORT INFORMATION
  Report Type: 
  Country: US (occurrence: US)
  Receive Date: 20120911
  Receipt Date: 20120911
  Transmission Date: 20130627
  Serious: Yes (Other)
  Sender: FDA-Public Use
  Company Number: US-JNJFOC-20120901256

PATIENT
  Sex: Female

DRUGS (1)
  1. DOXORUBICIN HYDROCHLORIDE(DOXIL) [Suspect]
     Indication: OVARIAN CANCER RECURRENT
     Route: 042

REACTIONS (3)
  - Mass [Unknown]
  - Obstruction [Unknown]
  - Ovarian cancer recurrent [Unknown]
